FAERS Safety Report 15965411 (Version 1)
Quarter: 2019Q1

REPORT INFORMATION
  Report Type: Report from Study
  Country: None (occurrence: FR)
  Receive Date: 20190215
  Receipt Date: 20190215
  Transmission Date: 20190418
  Serious: Yes (Hospitalization, Other)
  Sender: FDA-Public Use
  Company Number: FR-ABBVIE-19K-056-2660510-00

PATIENT
  Age: 66 Year
  Sex: Female

DRUGS (2)
  1. HUMIRA [Suspect]
     Active Substance: ADALIMUMAB
     Indication: COLITIS ULCERATIVE
     Dosage: 4 X 40 MG AT WEEK ZERO
     Route: 058
     Dates: start: 20190124, end: 20190124
  2. HUMIRA [Suspect]
     Active Substance: ADALIMUMAB
     Dosage: 2 X 40 MG AT WEEK SECOND
     Route: 058
     Dates: start: 201902, end: 201902

REACTIONS (6)
  - Periorbital haematoma [Unknown]
  - Cognitive disorder [Unknown]
  - Memory impairment [Unknown]
  - Presyncope [Unknown]
  - Presyncope [Unknown]
  - Extrasystoles [Unknown]

NARRATIVE: CASE EVENT DATE: 2019
